FAERS Safety Report 4676085-4 (Version None)
Quarter: 2005Q2

REPORT INFORMATION
  Report Type: 
  Country: None (occurrence: None)
  Receive Date: 20050525
  Receipt Date: 20050509
  Transmission Date: 20051028
  Serious: Yes (Other)
  Sender: FDA-Public Use
  Company Number: PHRM2005FR01496

PATIENT
  Age: 68 Year
  Sex: Male

DRUGS (2)
  1. NISISCO [Suspect]
     Indication: HYPERTENSION
     Dosage: 1 DF, QD
     Route: 048
     Dates: start: 20040101, end: 20050401
  2. CARBOCISTEINE [Suspect]
     Indication: BRONCHITIS VIRAL
     Dosage: 2 SPOONS FULL/DAY
     Route: 048
     Dates: start: 20050404, end: 20050409

REACTIONS (4)
  - ALPHA 2 GLOBULIN INCREASED [None]
  - INFLAMMATION [None]
  - RED BLOOD CELL SEDIMENTATION RATE INCREASED [None]
  - VASCULAR PURPURA [None]
